FAERS Safety Report 8105425-9 (Version None)
Quarter: 2012Q1

REPORT INFORMATION
  Report Type: 
  Country: None (occurrence: None)
  Receive Date: 20120201
  Receipt Date: 20120119
  Transmission Date: 20120608
  Serious: Yes (Other)
  Sender: FDA-Public Use
  Company Number: US-ELI_LILLY_AND_COMPANY-US201006002487

PATIENT
  Sex: Female

DRUGS (5)
  1. FORTEO [Suspect]
     Dosage: 20 UG, QD
     Route: 065
  2. FORTEO [Suspect]
     Dosage: 20 UG, QD
     Route: 065
  3. FORTEO [Suspect]
     Dosage: 20 UG, QD
  4. ANALGESICS [Concomitant]
     Indication: PAIN
  5. FORTEO [Suspect]
     Indication: OSTEOPOROSIS
     Dosage: 20 UG, DAILY (1/D)
     Route: 065
     Dates: start: 20100501

REACTIONS (17)
  - DIZZINESS [None]
  - PAIN [None]
  - FALL [None]
  - VERTIGO [None]
  - THROMBOSIS [None]
  - JOINT DISLOCATION [None]
  - NASOPHARYNGITIS [None]
  - MALAISE [None]
  - INCISION SITE PAIN [None]
  - SCAR [None]
  - ARTHRALGIA [None]
  - BURSA DISORDER [None]
  - BONE LESION [None]
  - LIGAMENT LAXITY [None]
  - JOINT INJURY [None]
  - MOVEMENT DISORDER [None]
  - JOINT SWELLING [None]
